FAERS Safety Report 4383394-5 (Version None)
Quarter: 2004Q2

REPORT INFORMATION
  Report Type: 
  Country: None (occurrence: None)
  Receive Date: 20040618
  Receipt Date: 20040607
  Transmission Date: 20050107
  Serious: Yes (Hospitalization)
  Sender: FDA-Public Use
  Company Number: 2004218084DE

PATIENT
  Age: 69 Year
  Sex: Female

DRUGS (5)
  1. EPIRUBICIN [Suspect]
     Indication: BREAST CANCER
     Dosage: SEE IMAGE
     Route: 042
     Dates: start: 20040108, end: 20040108
  2. EPIRUBICIN [Suspect]
     Indication: BREAST CANCER
     Dosage: SEE IMAGE
     Route: 042
     Dates: start: 20040115, end: 20040115
  3. FLUOROURACIL [Suspect]
     Indication: BREAST CANCER
     Dosage: SEE IMAGE
     Route: 042
     Dates: start: 20040108, end: 20040108
  4. FLUOROURACIL [Suspect]
     Indication: BREAST CANCER
     Dosage: SEE IMAGE
     Route: 042
     Dates: start: 20040115, end: 20040115
  5. CYCLOPHOSPHAMIDE [Suspect]
     Indication: BREAST CANCER
     Dosage: 150 MG, CYCLIC, ORAL
     Route: 048
     Dates: start: 20040108, end: 20040119

REACTIONS (5)
  - BLOOD PRESSURE FLUCTUATION [None]
  - CARDIOVASCULAR DISORDER [None]
  - FATIGUE [None]
  - HEART RATE IRREGULAR [None]
  - PANCYTOPENIA [None]
